FAERS Safety Report 8436103-4 (Version None)
Quarter: 2012Q2

REPORT INFORMATION
  Report Type: 
  Country: None (occurrence: None)
  Receive Date: 20120614
  Receipt Date: 20120608
  Transmission Date: 20120825
  Serious: Yes (Other)
  Sender: FDA-Public Use
  Company Number: PHEH2012US004864

PATIENT
  Sex: Female

DRUGS (12)
  1. NEXIUM [Concomitant]
  2. FUROSEMIDE [Concomitant]
  3. ATIVAN [Concomitant]
  4. CALCIUM ACETATE [Concomitant]
  5. OXYCODONE HCL [Concomitant]
  6. TRI PI PH O [Concomitant]
  7. POTASSIUM CHLORIDE [Concomitant]
  8. METOPROLOL TARTRATE [Concomitant]
  9. DIURETICS [Concomitant]
  10. EXJADE [Suspect]
     Indication: IRON OVERLOAD
     Dosage: 1500 MG, DAILY
     Route: 048
     Dates: start: 20070101, end: 20120201
  11. LEUCOVORIN CALCIUM [Concomitant]
  12. LONOX [Concomitant]

REACTIONS (1)
  - RENAL FAILURE CHRONIC [None]
